FAERS Safety Report 24886016 (Version 1)
Quarter: 2025Q1

REPORT INFORMATION
  Report Type: Spontaneous
  Country: IT (occurrence: IT)
  Receive Date: 20250125
  Receipt Date: 20250125
  Transmission Date: 20250409
  Serious: Yes (Other)
  Sender: ACCORD
  Company Number: IT-MLMSERVICE-20250110-PI336320-00141-5

PATIENT
  Age: 5 Decade
  Sex: Female

DRUGS (21)
  1. DOCETAXEL [Suspect]
     Active Substance: DOCETAXEL
     Indication: Metastases to bone
     Dosage: 20 MG/M2 ON DAY 1,8,15
     Dates: start: 201501, end: 201902
  2. GEMCITABINE [Suspect]
     Active Substance: GEMCITABINE
     Indication: Metastases to bone
     Dosage: 750 MG/M2 ON DAYS 2 AND 16
     Dates: start: 201501, end: 201902
  3. EXEMESTANE [Suspect]
     Active Substance: EXEMESTANE
     Indication: Metastases to bone
     Dates: start: 201501, end: 201902
  4. VINORELBINE [Suspect]
     Active Substance: VINORELBINE TARTRATE
     Indication: Metastases to bone
     Dosage: 15 MG/M2 ON DAY 2,18
     Dates: start: 201501, end: 201902
  5. EVEROLIMUS [Suspect]
     Active Substance: EVEROLIMUS
     Indication: Metastases to bone
     Dates: start: 201501, end: 201902
  6. ZOLEDRONIC ACID [Concomitant]
     Active Substance: ZOLEDRONIC ACID
     Indication: Metastases to bone
     Dates: start: 201401, end: 2017
  7. GEMCITABINE [Suspect]
     Active Substance: GEMCITABINE
     Indication: Malignant neoplasm progression
     Dosage: 750 MG/M2 ON DAYS 2 AND 16
     Dates: start: 201501, end: 201902
  8. VINORELBINE [Suspect]
     Active Substance: VINORELBINE TARTRATE
     Indication: Malignant neoplasm progression
     Dosage: 15 MG/M2 ON DAY 2,18
     Dates: start: 201501, end: 201902
  9. EVEROLIMUS [Suspect]
     Active Substance: EVEROLIMUS
     Indication: Breast cancer metastatic
     Dates: start: 201501, end: 201902
  10. EVEROLIMUS [Suspect]
     Active Substance: EVEROLIMUS
     Indication: Breast cancer metastatic
     Dates: start: 201501, end: 201902
  11. EXEMESTANE [Suspect]
     Active Substance: EXEMESTANE
     Indication: Hormone receptor positive HER2 negative breast cancer
     Dates: start: 201501, end: 201902
  12. EXEMESTANE [Suspect]
     Active Substance: EXEMESTANE
     Indication: Breast cancer metastatic
     Dates: start: 201501, end: 201902
  13. DOCETAXEL [Suspect]
     Active Substance: DOCETAXEL
     Indication: Breast cancer metastatic
     Dosage: 20 MG/M2 ON DAY 1,8,15
     Dates: start: 201501, end: 201902
  14. DOCETAXEL [Suspect]
     Active Substance: DOCETAXEL
     Indication: Breast cancer metastatic
     Dosage: 20 MG/M2 ON DAY 1,8,15
     Dates: start: 201501, end: 201902
  15. GEMCITABINE [Suspect]
     Active Substance: GEMCITABINE
     Indication: Breast cancer metastatic
     Dosage: 750 MG/M2 ON DAYS 2 AND 16
     Dates: start: 201501, end: 201902
  16. GEMCITABINE [Suspect]
     Active Substance: GEMCITABINE
     Indication: Metastases to bone
     Dosage: 750 MG/M2 ON DAYS 2 AND 16
     Dates: start: 201501, end: 201902
  17. VINORELBINE [Suspect]
     Active Substance: VINORELBINE TARTRATE
     Indication: Hormone receptor negative HER2 positive breast cancer
     Dosage: 15 MG/M2 ON DAY 2,18
     Dates: start: 201501, end: 201902
  18. VINORELBINE [Suspect]
     Active Substance: VINORELBINE TARTRATE
     Indication: Breast cancer metastatic
     Dosage: 15 MG/M2 ON DAY 2,18
     Dates: start: 201501, end: 201902
  19. EVEROLIMUS [Suspect]
     Active Substance: EVEROLIMUS
     Indication: Malignant neoplasm progression
     Dates: start: 201501, end: 201902
  20. EXEMESTANE [Suspect]
     Active Substance: EXEMESTANE
     Indication: Malignant neoplasm progression
     Dates: start: 201501, end: 201902
  21. DOCETAXEL [Suspect]
     Active Substance: DOCETAXEL
     Indication: Malignant neoplasm progression
     Dosage: 20 MG/M2 ON DAY 1,8,15
     Dates: start: 201501, end: 201902

REACTIONS (4)
  - Leukopenia [Unknown]
  - Hypertransaminasaemia [Unknown]
  - Nausea [Unknown]
  - Fatigue [Unknown]
